FAERS Safety Report 7570088-8 (Version None)
Quarter: 2011Q2

REPORT INFORMATION
  Report Type: 
  Country: None (occurrence: None)
  Receive Date: 20110622
  Receipt Date: 20110622
  Transmission Date: 20111010
  Serious: Yes (Other)
  Sender: FDA-Public Use
  Company Number: None

PATIENT
  Sex: Female
  Weight: 55.7924 kg

DRUGS (1)
  1. CHANTIX [Suspect]
     Indication: SMOKING CESSATION THERAPY
     Dosage: 0.5MG ONE BY MOUTH
     Route: 048
     Dates: start: 20110521, end: 20110525

REACTIONS (2)
  - BACK PAIN [None]
  - NEUROPATHY PERIPHERAL [None]
